FAERS Safety Report 15172131 (Version 1)
Quarter: 2018Q3

REPORT INFORMATION
  Report Type: Spontaneous
  Country: DK (occurrence: DK)
  Receive Date: 20180720
  Receipt Date: 20180720
  Transmission Date: 20181010
  Serious: Yes (Death)
  Sender: FDA-Public Use
  Company Number: DK-TEVA-2018-DK-929467

PATIENT
  Age: 41 Year
  Sex: Female

DRUGS (11)
  1. CLARITHROMYCIN ^ACTAVIS^ [Suspect]
     Active Substance: CLARITHROMYCIN
     Indication: PNEUMONIA
     Dosage: 50 MILLIGRAM DAILY;
     Route: 048
     Dates: start: 20180412
  2. RISPOLEPT CONSTA [Interacting]
     Active Substance: RISPERIDONE
     Indication: SCHIZOPHRENIA
     Route: 030
     Dates: start: 20130419
  3. METFORMIN [Concomitant]
     Active Substance: METFORMIN HYDROCHLORIDE
     Indication: DIABETES MELLITUS
     Dosage: 2000 MILLIGRAM DAILY;
     Route: 048
     Dates: start: 20161214
  4. AMLODIPINE [Concomitant]
     Active Substance: AMLODIPINE BESYLATE
     Indication: HYPERTENSION
     Dosage: 5 MILLIGRAM DAILY;
     Route: 048
     Dates: start: 20161121
  5. TRUXAL [Concomitant]
     Active Substance: CHLORPROTHIXENE
     Indication: SCHIZOPHRENIA
     Dosage: DOSIS: 1 TBL. PN H?JST 2 GANGE DAGLIGT. DER KAN EFTER BEHOV TAGES 25 ELLER 50 MG.
     Route: 048
     Dates: start: 20120727
  6. HJERTEMAGNYL [Concomitant]
     Active Substance: ASPIRIN\MAGNESIUM OXIDE
     Indication: ANTICOAGULANT THERAPY
     Dosage: 75 MILLIGRAM DAILY;
     Route: 048
     Dates: start: 20140402
  7. PAMOL [Concomitant]
     Active Substance: ACETAMINOPHEN
     Indication: PAIN
     Dosage: . DOSIS: 2 TBL. EFTER BEHOV, H?JEST 4 GANGE DAGLIGT.
     Route: 048
     Dates: start: 20140311
  8. CLOZAPIN ^MYLAN^ [Interacting]
     Active Substance: CLOZAPINE
     Indication: SCHIZOPHRENIA
     Dosage: STYRKE: 100 MG. DOSIS: 0,5 TBL. KL. 8 + 1 TBL. KL. 14 + 1,5 TBL. KL. 22.
     Route: 048
     Dates: start: 20160405
  9. AKINETON [Concomitant]
     Active Substance: BIPERIDEN HYDROCHLORIDE
     Indication: PARALYSIS
     Route: 048
     Dates: start: 20140424
  10. SIMVASTATIN. [Concomitant]
     Active Substance: SIMVASTATIN
     Indication: HYPERCHOLESTEROLAEMIA
     Dosage: 20 MILLIGRAM DAILY;
     Route: 048
     Dates: start: 20140311
  11. EGAZIL [Concomitant]
     Active Substance: HYOSCYAMINE SULFATE
     Indication: ADVERSE DRUG REACTION
     Dosage: 1.2 MILLIGRAM DAILY; STYRKE: 0,2 MG
     Route: 048
     Dates: start: 20140526

REACTIONS (3)
  - Drug interaction [Fatal]
  - Arrhythmia [Fatal]
  - Cardiac failure [Fatal]

NARRATIVE: CASE EVENT DATE: 201804
